FAERS Safety Report 4667145-2 (Version None)
Quarter: 2005Q2

REPORT INFORMATION
  Report Type: 
  Country: None (occurrence: None)
  Receive Date: 20050520
  Receipt Date: 20040409
  Transmission Date: 20051028
  Serious: Yes (Death, Other)
  Sender: FDA-Public Use
  Company Number: PHEH2004US04060

PATIENT
  Age: 43 Year
  Sex: Female

DRUGS (3)
  1. ZOMETA [Suspect]
     Indication: BREAST CANCER
     Dosage: 4 MG ONE TIME ONLY OVER 15 MIN.
     Route: 042
     Dates: start: 20030721, end: 20030721
  2. EPOETIN ALFA [Concomitant]
     Dosage: 10-40 THOUS. UNITS FOR 13 TREAT.
     Dates: start: 20030714, end: 20030912
  3. VINORELBINE TARTRATE [Concomitant]
     Dosage: 44 MG FOR 3 TREATMENTS
     Dates: start: 20030714, end: 20030731

REACTIONS (5)
  - BREAST CANCER [None]
  - JAW DISORDER [None]
  - MALIGNANT NEOPLASM PROGRESSION [None]
  - OSTEONECROSIS [None]
  - TOOTH EXTRACTION [None]
